FAERS Safety Report 23167605 (Version 1)
Quarter: 2023Q4

REPORT INFORMATION
  Report Type: Spontaneous
  Country: US (occurrence: US)
  Receive Date: 20231109
  Receipt Date: 20231109
  Transmission Date: 20240109
  Serious: No
  Sender: FDA-Public Use
  Company Number: US-SA-SAC20231101001472

PATIENT
  Sex: Female
  Weight: 57 kg

DRUGS (3)
  1. DUPIXENT [Suspect]
     Active Substance: DUPILUMAB
     Indication: Dermatitis
     Dosage: 300 MG, QOW
     Route: 058
  2. VITAMIN D NOS [Concomitant]
     Active Substance: VITAMIN D NOS
  3. VALTREX [Concomitant]
     Active Substance: VALACYCLOVIR HYDROCHLORIDE

REACTIONS (3)
  - Rash [Unknown]
  - Dry skin [Unknown]
  - Drug ineffective for unapproved indication [Unknown]
